FAERS Safety Report 6257869-8 (Version None)
Quarter: 2009Q3

REPORT INFORMATION
  Report Type: 
  Country: None (occurrence: None)
  Receive Date: 20090707
  Receipt Date: 20090625
  Transmission Date: 20100115
  Serious: Yes (Death, Hospitalization)
  Sender: FDA-Public Use
  Company Number: AU-RANBAXY-2009RR-24641

PATIENT
  Sex: Female

DRUGS (5)
  1. METFORMIN HCL [Suspect]
     Dosage: 850 MG, TID
     Route: 048
  2. GLICLAZIDE [Suspect]
     Dosage: 90 MG, UNK
     Route: 048
  3. FRUSEMIDE [Concomitant]
     Dosage: 40 MG, UNK
     Route: 048
  4. QUINAPRIL [Concomitant]
     Dosage: 30 MG, UNK
  5. CANDESARTAN/HYDROCHLOROTHIAZIDE [Concomitant]
     Dosage: 16 MG, UNK

REACTIONS (6)
  - DEATH [None]
  - DEHYDRATION [None]
  - HYPOGLYCAEMIA [None]
  - LACTIC ACIDOSIS [None]
  - RENAL FAILURE ACUTE [None]
  - SHOCK [None]
